FAERS Safety Report 21219619 (Version 1)
Quarter: 2022Q3

REPORT INFORMATION
  Report Type: Report from Study
  Country: EG (occurrence: EG)
  Receive Date: 20220817
  Receipt Date: 20220817
  Transmission Date: 20221026
  Serious: Yes (Other)
  Sender: FDA-Public Use
  Company Number: EG-NOVARTISPH-NVSC2022EG184570

PATIENT
  Age: 5 Year
  Sex: Male

DRUGS (5)
  1. OMNITROPE [Suspect]
     Active Substance: SOMATROPIN
     Indication: Growth hormone deficiency
     Dosage: 0.5 MG, QD
     Route: 058
     Dates: start: 20201007
  2. OMNITROPE [Suspect]
     Active Substance: SOMATROPIN
     Dosage: 0.2 MG, QD
     Route: 058
  3. OMNITROPE [Suspect]
     Active Substance: SOMATROPIN
     Dosage: 0.6 MG, QD
     Route: 058
     Dates: end: 202108
  4. VIDROP [Concomitant]
     Indication: Supplementation therapy
     Dosage: 5 CENTIMETRE, QD
     Route: 048
     Dates: start: 20201007
  5. MINERALS\VITAMINS [Concomitant]
     Active Substance: MINERALS\VITAMINS
     Indication: Supplementation therapy
     Dosage: UNK (ONE TABLESPOON FULL)
     Route: 048
     Dates: start: 20201007

REACTIONS (3)
  - Growth retardation [Not Recovered/Not Resolved]
  - Erythema [Recovered/Resolved]
  - Headache [Recovered/Resolved]

NARRATIVE: CASE EVENT DATE: 20201007
